FAERS Safety Report 21372203 (Version 1)
Quarter: 2022Q3

REPORT INFORMATION
  Report Type: Spontaneous
  Country: US (occurrence: US)
  Receive Date: 20220924
  Receipt Date: 20220924
  Transmission Date: 20221027
  Serious: No
  Sender: FDA-Public Use
  Company Number: US-009507513-2209USA004232

PATIENT
  Sex: Female

DRUGS (1)
  1. KEYTRUDA [Suspect]
     Active Substance: PEMBROLIZUMAB
     Indication: Oesophageal squamous cell carcinoma
     Dosage: START DATE: 1 YEAR (YR) 1/2 AGO
     Route: 042
     Dates: start: 2021

REACTIONS (4)
  - Ocular discomfort [Not Recovered/Not Resolved]
  - Eye irritation [Not Recovered/Not Resolved]
  - Lacrimation increased [Not Recovered/Not Resolved]
  - Periorbital swelling [Not Recovered/Not Resolved]

NARRATIVE: CASE EVENT DATE: 20220101
